FAERS Safety Report 8593385-6 (Version None)
Quarter: 2012Q3

REPORT INFORMATION
  Report Type: 
  Country: None (occurrence: None)
  Receive Date: 20120814
  Receipt Date: 20120810
  Transmission Date: 20120928
  Serious: Yes (Life-Threatening, Hospitalization, Other)
  Sender: FDA-Public Use
  Company Number: PHEH2012US012987

PATIENT
  Sex: Female

DRUGS (6)
  1. LABETALOL HCL [Suspect]
     Indication: ARRHYTHMIA
     Dosage: 20 MG, UNK
     Route: 042
     Dates: start: 20100103, end: 20100107
  2. METOPROLOL [Concomitant]
     Dosage: 25 MG, QD
     Route: 048
  3. CYMBALTA [Concomitant]
     Indication: DEPRESSION
     Dosage: 90 MG DAILY
     Route: 048
  4. TRAZODONE HYDROCHLORIDE [Concomitant]
     Dosage: 100 MG, UNK
     Route: 048
     Dates: end: 20110101
  5. EXELON [Suspect]
     Indication: DEMENTIA
     Dosage: 9.5 MG/24 HOURS
     Route: 062
     Dates: end: 20100114
  6. LEVOTHYROXINE SODIUM [Concomitant]
     Dosage: 100 MG DAILY
     Route: 048

REACTIONS (3)
  - CARDIAC ARREST [None]
  - MEMORY IMPAIRMENT [None]
  - ARRHYTHMIA [None]
